FAERS Safety Report 8926014 (Version 2)
Quarter: 2013Q1

REPORT INFORMATION
  Report Type: Spontaneous
  Country: TR (occurrence: TR)
  Receive Date: 20121126
  Receipt Date: 20130103
  Transmission Date: 20140127
  Serious: Yes (Hospitalization)
  Sender: FDA-Public Use
  Company Number: PHHY2012TR107078

PATIENT
  Age: 62 Year
  Sex: Male

DRUGS (3)
  1. AFINITOR [Suspect]
     Indication: RENAL CANCER METASTATIC
     Dates: end: 201205
  2. SUTENT [Concomitant]
     Dosage: 50 MG, QD
  3. INTERFERON [Concomitant]

REACTIONS (4)
  - Cardiovascular disorder [Recovered/Resolved]
  - Malignant neoplasm progression [Unknown]
  - Drug ineffective [Unknown]
  - Local swelling [Unknown]
